FAERS Safety Report 6888379-2 (Version None)
Quarter: 2010Q3

REPORT INFORMATION
  Report Type: 
  Country: None (occurrence: None)
  Receive Date: 20100730
  Receipt Date: 20100722
  Transmission Date: 20110219
  Serious: Yes (Hospitalization, Other)
  Sender: FDA-Public Use
  Company Number: JP-ROCHE-688827

PATIENT
  Sex: Female
  Weight: 54 kg

DRUGS (12)
  1. TOCILIZUMAB [Suspect]
     Indication: RHEUMATOID ARTHRITIS
     Route: 041
     Dates: start: 20091104, end: 20091104
  2. TOCILIZUMAB [Suspect]
     Route: 041
     Dates: start: 20091202, end: 20091202
  3. TOCILIZUMAB [Suspect]
     Route: 041
     Dates: start: 20100106, end: 20100106
  4. TOCILIZUMAB [Suspect]
     Route: 041
     Dates: start: 20100203, end: 20100203
  5. AZULFIDINE [Concomitant]
     Dosage: FORM: ENTERIC COATING DRUG
     Route: 048
  6. RHEUMATREX [Concomitant]
     Route: 048
  7. PREDONINE [Concomitant]
     Route: 048
  8. ONEALFA [Concomitant]
     Route: 048
  9. LOXONIN [Concomitant]
     Dosage: FORM: PERORAL AGENT
     Route: 048
  10. AZUNOL [Concomitant]
     Dosage: FORM: PERORAL AGENT
     Route: 048
  11. FOLIAMIN [Concomitant]
     Dosage: FORM: PERORAL AGENT
     Route: 048
  12. BENET [Concomitant]
     Route: 048

REACTIONS (3)
  - ILEUS [None]
  - INFECTION [None]
  - VOMITING [None]
